FAERS Safety Report 4598377-X (Version None)
Quarter: 2005Q1

REPORT INFORMATION
  Report Type: 
  Country: None (occurrence: None)
  Receive Date: 20050304
  Receipt Date: 20050204
  Transmission Date: 20050727
  Serious: Yes (Other)
  Sender: FDA-Public Use
  Company Number: US-KINGPHARMUSA00001-K200500190

PATIENT
  Age: 68 Year
  Sex: Male

DRUGS (4)
  1. ALTACE [Suspect]
     Indication: MICROALBUMINURIA
     Dosage: 5 MG, QD
     Route: 048
     Dates: start: 20030101, end: 20041001
  2. ALTACE [Suspect]
     Dosage: 10 MG, QD
     Route: 048
     Dates: start: 20041001
  3. METFORMIN [Concomitant]
     Indication: DIABETES MELLITUS
     Dosage: 500 MG, UNK
     Dates: start: 20020101
  4. ENTERIC ASPIRIN [Concomitant]
     Indication: PROPHYLAXIS
     Dosage: 81 MG, UNK
     Dates: start: 20020101

REACTIONS (4)
  - CARDIAC DISORDER [None]
  - EXTRASYSTOLES [None]
  - HEART RATE DECREASED [None]
  - SICK SINUS SYNDROME [None]
